FAERS Safety Report 8576422-4 (Version None)
Quarter: 2012Q3

REPORT INFORMATION
  Report Type: 
  Country: None (occurrence: None)
  Receive Date: 20120725
  Receipt Date: 20120713
  Transmission Date: 20120928
  Serious: Yes (Hospitalization, Disabling, Other)
  Sender: FDA-Public Use
  Company Number: 2011MA001430

PATIENT
  Sex: Female
  Weight: 74.8435 kg

DRUGS (32)
  1. BENZTROPINE MESYLATE [Concomitant]
  2. PROMETRIUM [Concomitant]
  3. PROTONIX [Concomitant]
  4. TOPAMAX [Concomitant]
  5. VICODIN [Concomitant]
  6. XANAX [Concomitant]
  7. AMITRIPTYLINE HCL [Concomitant]
  8. METOCLOPRAMIDE [Suspect]
     Indication: GASTROOESOPHAGEAL REFLUX DISEASE
     Dosage: 10 MG;AC + HS;PO
     Route: 048
     Dates: start: 20060901, end: 20100101
  9. METOCLOPRAMIDE [Suspect]
     Indication: NAUSEA
     Dosage: 10 MG;AC + HS;PO
     Route: 048
     Dates: start: 20060901, end: 20100101
  10. SINEQUAN [Concomitant]
  11. DARVOCET-N 50 [Concomitant]
  12. PRASTERONE [Concomitant]
  13. FLONASE [Concomitant]
  14. KLONOPIN [Concomitant]
  15. LEVAQUIN [Concomitant]
  16. PRILOSEC [Concomitant]
  17. SOMA [Concomitant]
  18. FELDENE [Concomitant]
  19. MARINOL [Concomitant]
  20. PREVACID [Concomitant]
  21. SEROQUEL [Concomitant]
  22. BENADRYL [Concomitant]
  23. DOXEPIN [Concomitant]
  24. LOPRESSOR [Concomitant]
  25. TRAZODONE HYDROCHLORIDE [Concomitant]
  26. VITAMIN B-12 [Concomitant]
  27. COGENTIN [Concomitant]
  28. GABAPENTIN [Concomitant]
  29. GOODY POWDER [Concomitant]
  30. MIRALAX [Concomitant]
  31. HALDOL [Concomitant]
  32. SIMVASTATIN [Concomitant]

REACTIONS (48)
  - TARDIVE DYSKINESIA [None]
  - ASTHMA [None]
  - BIPOLAR DISORDER [None]
  - SWOLLEN TONGUE [None]
  - TREMOR [None]
  - INSOMNIA [None]
  - NAUSEA [None]
  - ANXIETY [None]
  - VISION BLURRED [None]
  - DYSTONIA [None]
  - ELECTROCARDIOGRAM T WAVE ABNORMAL [None]
  - PARAESTHESIA [None]
  - AGITATION [None]
  - MANIA [None]
  - OSTEOPENIA [None]
  - EMOTIONAL DISORDER [None]
  - NECK PAIN [None]
  - HEADACHE [None]
  - GASTROOESOPHAGEAL REFLUX DISEASE [None]
  - VOMITING [None]
  - DRUG INEFFECTIVE [None]
  - LOSS OF CONSCIOUSNESS [None]
  - DIARRHOEA [None]
  - MUSCULAR WEAKNESS [None]
  - ESSENTIAL TREMOR [None]
  - ECONOMIC PROBLEM [None]
  - HYPERLIPIDAEMIA [None]
  - PAIN MANAGEMENT [None]
  - CONFUSIONAL STATE [None]
  - BLEPHARITIS [None]
  - PAIN IN EXTREMITY [None]
  - GASTRITIS EROSIVE [None]
  - ARTHRALGIA [None]
  - VITAMIN B12 DEFICIENCY [None]
  - ARTIFICIAL MENOPAUSE [None]
  - FATIGUE [None]
  - ELECTROCARDIOGRAM T WAVE INVERSION [None]
  - BENIGN NEOPLASM [None]
  - MEMORY IMPAIRMENT [None]
  - CARPAL TUNNEL SYNDROME [None]
  - MOOD SWINGS [None]
  - BRONCHITIS [None]
  - DEPRESSION [None]
  - FIBROMYALGIA [None]
  - HYPERTENSION [None]
  - RADICULITIS CERVICAL [None]
  - HAEMORRHOIDS [None]
  - INTERVERTEBRAL DISC PROTRUSION [None]
